FAERS Safety Report 5983881-X (Version None)
Quarter: 2008Q4

REPORT INFORMATION
  Report Type: 
  Country: None (occurrence: None)
  Receive Date: 20081208
  Receipt Date: 20081202
  Transmission Date: 20090506
  Serious: No
  Sender: FDA-Public Use
  Company Number: US-JNJFOC-20081201275

PATIENT
  Sex: Female
  Weight: 65.77 kg

DRUGS (5)
  1. DURAGESIC-100 [Suspect]
     Route: 062
  2. DURAGESIC-100 [Suspect]
     Route: 062
  3. DURAGESIC-100 [Suspect]
     Indication: FACIAL PAIN
     Route: 062
  4. ACIPHEX [Suspect]
     Indication: GASTRIC DISORDER
     Route: 048
  5. PHENOBARBITAL TAB [Concomitant]
     Indication: HEAD TITUBATION
     Route: 048

REACTIONS (6)
  - BLOOD PRESSURE INCREASED [None]
  - FEELING ABNORMAL [None]
  - INADEQUATE ANALGESIA [None]
  - INAPPROPRIATE SCHEDULE OF DRUG ADMINISTRATION [None]
  - WEIGHT DECREASED [None]
  - WITHDRAWAL SYNDROME [None]
